FAERS Safety Report 7219173-0 (Version None)
Quarter: 2011Q1

REPORT INFORMATION
  Report Type: 
  Country: None (occurrence: None)
  Receive Date: 20110111
  Receipt Date: 20110104
  Transmission Date: 20110831
  Serious: Yes (Death, Life-Threatening, Hospitalization, Other)
  Sender: FDA-Public Use
  Company Number: CA-CELGENEUS-028-21880-06110605

PATIENT
  Sex: Male
  Weight: 71.2 kg

DRUGS (9)
  1. TYLENOL II [Concomitant]
     Indication: BONE PAIN
     Dosage: 300/15 MG
     Route: 048
     Dates: start: 20061102, end: 20061109
  2. IMODIUM [Concomitant]
     Route: 048
     Dates: start: 20061102, end: 20061109
  3. TYLENOL II [Concomitant]
  4. NILSTAT [Concomitant]
     Dosage: 100,000 U/ML
     Route: 048
     Dates: start: 20061030, end: 20061109
  5. NAPROSYN [Concomitant]
     Route: 048
     Dates: start: 20061026, end: 20061031
  6. REVLIMID [Suspect]
     Route: 048
     Dates: start: 20061019, end: 20061108
  7. FLAGYL [Concomitant]
     Route: 048
  8. FLAGYL [Concomitant]
     Route: 048
     Dates: start: 20061102, end: 20061109
  9. ALLOPURINOL [Concomitant]
     Indication: PROPHYLAXIS
     Route: 048
     Dates: start: 20061019, end: 20061102

REACTIONS (3)
  - SEPSIS [None]
  - FEBRILE NEUTROPENIA [None]
  - THROMBOCYTOPENIA [None]
